FAERS Safety Report 23696814 (Version 1)
Quarter: 2024Q2

REPORT INFORMATION
  Report Type: Spontaneous
  Country: US (occurrence: None)
  Receive Date: 20240401
  Receipt Date: 20240401
  Transmission Date: 20240716
  Serious: No
  Sender: FDA-Public Use
  Company Number: None

PATIENT
  Age: 36 Year
  Sex: Female
  Weight: 106.65 kg

DRUGS (7)
  1. MOUNJARO [Suspect]
     Active Substance: TIRZEPATIDE
     Indication: Polycystic ovarian syndrome
     Dates: start: 20240331
  2. METFORMIN [Concomitant]
  3. CYMBALTA [Concomitant]
  4. MAGNESIUM [Concomitant]
  5. VITAMIN C [Concomitant]
     Active Substance: ASCORBIC ACID
  6. VITAMIN B [Concomitant]
     Active Substance: VITAMIN B
  7. IRON [Concomitant]

REACTIONS (2)
  - Neck pain [None]
  - Pain [None]

NARRATIVE: CASE EVENT DATE: 20240401
